FAERS Safety Report 12606455 (Version 1)
Quarter: 2016Q3

REPORT INFORMATION
  Report Type: Spontaneous
  Country: CA (occurrence: CA)
  Receive Date: 20160729
  Receipt Date: 20160729
  Transmission Date: 20161109
  Serious: Yes (Other)
  Sender: FDA-Public Use
  Company Number: CA-GLAXOSMITHKLINE-A1056947A

PATIENT
  Sex: Female
  Weight: 77 kg

DRUGS (8)
  1. BENLYSTA [Suspect]
     Active Substance: BELIMUMAB
     Dosage: 774 MG FOR WEEK 0,2,4 AND THEN EVERY 4 WEEKS
     Route: 042
  2. COUMADIN [Concomitant]
     Active Substance: WARFARIN SODIUM
     Indication: PRODUCT USED FOR UNKNOWN INDICATION
     Dosage: UNK
  3. BENLYSTA [Suspect]
     Active Substance: BELIMUMAB
     Dosage: 774 MG, UNK, Q4 WEEKS
  4. BENLYSTA [Suspect]
     Active Substance: BELIMUMAB
     Indication: SYSTEMIC LUPUS ERYTHEMATOSUS
     Dosage: WEEKS 0, 2, 4, THEN EVERY 4 WEEKS
     Route: 042
     Dates: start: 20130920
  5. BENLYSTA [Suspect]
     Active Substance: BELIMUMAB
     Dosage: UNK LAST INFUSION
     Route: 042
     Dates: start: 20151221
  6. BENLYSTA [Suspect]
     Active Substance: BELIMUMAB
     Dosage: 774 MG, UNK
     Route: 042
  7. BENLYSTA [Suspect]
     Active Substance: BELIMUMAB
     Dosage: 790 MG, UNK
     Route: 042
  8. FRAGMIN [Concomitant]
     Active Substance: DALTEPARIN SODIUM
     Indication: PRODUCT USED FOR UNKNOWN INDICATION
     Dosage: UNK

REACTIONS (13)
  - Back pain [Unknown]
  - Pyrexia [Unknown]
  - Systemic lupus erythematosus [Unknown]
  - Depression [Unknown]
  - Synovitis [Unknown]
  - Fatigue [Unknown]
  - Hypoaesthesia [Unknown]
  - Underdose [Unknown]
  - Intervertebral disc protrusion [Unknown]
  - Weight decreased [Unknown]
  - Joint effusion [Unknown]
  - Arthritis [Unknown]
  - Disease recurrence [Unknown]
